FAERS Safety Report 12720746 (Version 8)
Quarter: 2018Q4

REPORT INFORMATION
  Report Type: Report from Study
  Country: DE (occurrence: DE)
  Receive Date: 20160907
  Receipt Date: 20181218
  Transmission Date: 20190204
  Serious: Yes (Hospitalization, Disabling, Other)
  Sender: FDA-Public Use
  Company Number: DE-BRISTOL-MYERS SQUIBB COMPANY-BMS-2016-072270

PATIENT
  Age: 53 Year
  Sex: Female

DRUGS (5)
  1. LODOTRA [Concomitant]
     Active Substance: PREDNISONE
     Indication: PRODUCT USED FOR UNKNOWN INDICATION
     Dosage: 1 MG, UNK
     Route: 065
  2. ABATACEPT [Suspect]
     Active Substance: ABATACEPT
     Indication: RHEUMATOID ARTHRITIS
     Dosage: 750 MG, Q6WK
     Route: 065
  3. DEKRISTOL [Concomitant]
     Active Substance: CHOLECALCIFEROL
     Indication: PRODUCT USED FOR UNKNOWN INDICATION
     Dosage: 20000 IU, UNK
     Route: 065
  4. IMBUN                              /00109201/ [Concomitant]
     Indication: PRODUCT USED FOR UNKNOWN INDICATION
     Dosage: 800 MG, PRN
     Route: 065
  5. PANTOZOL [Concomitant]
     Active Substance: PANTOPRAZOLE SODIUM
     Indication: PRODUCT USED FOR UNKNOWN INDICATION
     Dosage: 40 MG, PRN
     Route: 065

REACTIONS (6)
  - Osteoarthritis [Not Recovered/Not Resolved]
  - Hyperthyroidism [Unknown]
  - Stress [Unknown]
  - Weight decreased [Unknown]
  - Off label use [Unknown]
  - Synovitis [Recovered/Resolved]

NARRATIVE: CASE EVENT DATE: 20151007
